FAERS Safety Report 5054734-9 (Version None)
Quarter: 2006Q3

REPORT INFORMATION
  Report Type: 
  Country: None (occurrence: None)
  Receive Date: 20060719
  Receipt Date: 20060706
  Transmission Date: 20061208
  Serious: Yes (Other)
  Sender: FDA-Public Use
  Company Number: PHBS2006ES10179

PATIENT
  Age: 64 Year
  Sex: Male

DRUGS (13)
  1. CYCLOSPORINE [Suspect]
     Indication: RENAL TRANSPLANT
     Dosage: 10 MG/KG/D
     Dates: start: 19960101
  2. CYCLOSPORINE [Suspect]
     Dosage: 100 MG, BID
  3. CERTICAN [Interacting]
     Indication: RENAL TRANSPLANT
     Dosage: 1.5 MG/D
  4. CERTICAN [Interacting]
     Dosage: 3 MG/D
  5. MYCOPHENOLATE MOFETIL [Suspect]
     Indication: RENAL TRANSPLANT
     Dosage: 1000 MG/D
  6. MYCOPHENOLATE MOFETIL [Suspect]
     Dosage: 800 MG/D
  7. PREDNISOLONE [Suspect]
     Indication: RENAL TRANSPLANT
     Dosage: 0.5 MG/KG/D
     Dates: start: 19960101
  8. PREDNISOLONE [Suspect]
     Dosage: 10 MG/D
  9. DOXAZOSIN [Concomitant]
     Dosage: 4 MG/D
  10. ATENOLOL [Concomitant]
     Dosage: 50 MG, BID
  11. LOSARTAN POSTASSIUM [Concomitant]
     Dosage: 50 MG/D
  12. ATORVASTATIN CALCIUM [Concomitant]
     Dosage: 10 MG/D
  13. CLOPIDOGREL [Concomitant]
     Dosage: 75 MG/D

REACTIONS (10)
  - BLOOD CREATININE INCREASED [None]
  - DIZZINESS [None]
  - HYPERTENSION [None]
  - NEPHROPATHY TOXIC [None]
  - PROSTATIC DISORDER [None]
  - SKIN CANCER [None]
  - SKIN NEOPLASM EXCISION [None]
  - TEMPORAL LOBE EPILEPSY [None]
  - TRANSURETHRAL PROSTATECTOMY [None]
  - VENTRICULAR HYPERTROPHY [None]
